FAERS Safety Report 6415807-9 (Version None)
Quarter: 2009Q4

REPORT INFORMATION
  Report Type: 
  Country: None (occurrence: None)
  Receive Date: 20091027
  Receipt Date: 20091020
  Transmission Date: 20100525
  Serious: Yes (Other)
  Sender: FDA-Public Use
  Company Number: US-ALEXION-A200900846

PATIENT
  Sex: Male

DRUGS (4)
  1. SOLIRIS [Suspect]
     Indication: PAROXYSMAL NOCTURNAL HAEMOGLOBINURIA
     Dosage: 600 MG, QW
     Route: 042
     Dates: start: 20070419, end: 20070510
  2. SOLIRIS [Suspect]
     Dosage: 900 MG, Q2W
     Route: 042
     Dates: start: 20070517
  3. EXJADE [Concomitant]
     Dosage: UNK
     Route: 048
  4. PRILOSEC [Concomitant]
     Dosage: UNK
     Route: 048

REACTIONS (2)
  - CORNEAL ABRASION [None]
  - EYE INFECTION FUNGAL [None]
